FAERS Safety Report 8401671-5 (Version None)
Quarter: 2012Q2

REPORT INFORMATION
  Report Type: 
  Country: None (occurrence: None)
  Receive Date: 20120601
  Receipt Date: 20120521
  Transmission Date: 20120825
  Serious: Yes (Hospitalization, Other)
  Sender: FDA-Public Use
  Company Number: US-ASTELLAS-2012US005088

PATIENT
  Age: 59 Year
  Sex: Male

DRUGS (2)
  1. ERLOTINIB HYDROCHLORIDE [Suspect]
     Indication: NON-SMALL CELL LUNG CANCER
     Dosage: 150 MG, UID/QD
     Route: 048
     Dates: start: 20120321, end: 20120510
  2. ANTIBIOTICS [Concomitant]
     Indication: RASH
     Dosage: UNK
     Route: 048

REACTIONS (4)
  - UNEVALUABLE EVENT [None]
  - HAEMOPTYSIS [None]
  - RASH [None]
  - SENSORY LOSS [None]
